FAERS Safety Report 7832254-3 (Version None)
Quarter: 2011Q4

REPORT INFORMATION
  Report Type: 
  Country: None (occurrence: None)
  Receive Date: 20111022
  Receipt Date: 20111005
  Transmission Date: 20120403
  Serious: Yes (Hospitalization)
  Sender: FDA-Public Use
  Company Number: US-BAYER-2011-052554

PATIENT
  Age: 26 Year
  Sex: Female
  Weight: 129.25 kg

DRUGS (3)
  1. ALBUTEROL [Concomitant]
     Indication: ASTHMA
     Dosage: UNK
     Route: 055
     Dates: start: 20010101
  2. MOTRIN [Concomitant]
     Route: 048
  3. YASMIN [Suspect]
     Indication: CONTRACEPTION
     Dosage: UNK
     Dates: start: 20030101, end: 20050101

REACTIONS (2)
  - PAIN [None]
  - DEEP VEIN THROMBOSIS [None]
